FAERS Safety Report 12648384 (Version 5)
Quarter: 2016Q3

REPORT INFORMATION
  Report Type: Spontaneous
  Country: JP (occurrence: JP)
  Receive Date: 20160812
  Receipt Date: 20160826
  Transmission Date: 20161109
  Serious: Yes (Hospitalization, Other)
  Sender: FDA-Public Use
  Company Number: JP-009507513-1608JPN001640

PATIENT
  Age: 30 Year
  Sex: Female

DRUGS (8)
  1. MEDICON (DEXTROMETHORPHAN HYDROBROMIDE) [Concomitant]
     Active Substance: DEXTROMETHORPHAN HYDROBROMIDE
     Indication: BRONCHITIS
     Dosage: 45 MG, QD
     Route: 048
     Dates: start: 20160721, end: 20160726
  2. SULTANOL [Concomitant]
     Active Substance: ALBUTEROL SULFATE
     Indication: ASTHMA
     Dosage: UNK
     Dates: start: 20160716
  3. LORATADINE. [Suspect]
     Active Substance: LORATADINE
     Indication: URTICARIA
     Dosage: 10 MG, QD
     Route: 048
     Dates: start: 20160721, end: 20160726
  4. CLARITH [Concomitant]
     Active Substance: CLARITHROMYCIN
     Indication: ASTHMA
     Dosage: 400 MG, BID
     Route: 048
     Dates: start: 20160721, end: 20160726
  5. KIPRES [Suspect]
     Active Substance: MONTELUKAST SODIUM
     Indication: ASTHMA
     Dosage: 10 MG, QD
     Route: 048
     Dates: start: 20160721, end: 20160726
  6. ADOAIR [Suspect]
     Active Substance: FLUTICASONE PROPIONATE\SALMETEROL XINAFOATE
     Indication: ASTHMA
     Dosage: 500 ?G, QD
     Route: 055
     Dates: start: 20160721, end: 20160726
  7. ADOAIR [Suspect]
     Active Substance: FLUTICASONE PROPIONATE\SALMETEROL XINAFOATE
     Indication: BRONCHITIS
  8. MUCODYNE [Concomitant]
     Active Substance: CARBOCYSTEINE
     Indication: BRONCHITIS
     Dosage: 1.5 G, QD
     Route: 048
     Dates: start: 20160721, end: 20160726

REACTIONS (2)
  - Abortion [Recovered/Resolved]
  - Maternal exposure during pregnancy [Recovered/Resolved]

NARRATIVE: CASE EVENT DATE: 20160726
